FAERS Safety Report 16299260 (Version 1)
Quarter: 2019Q2

REPORT INFORMATION
  Report Type: Spontaneous
  Country: CO (occurrence: CO)
  Receive Date: 20190510
  Receipt Date: 20190510
  Transmission Date: 20190711
  Serious: Yes (Other)
  Sender: FDA-Public Use
  Company Number: CO-009507513-1904COL003250

PATIENT
  Age: 22 Year
  Sex: Female
  Weight: 59 kg

DRUGS (1)
  1. IMPLANON [Suspect]
     Active Substance: ETONOGESTREL
     Indication: CONTRACEPTION
     Dosage: 1 IMPLANT, EVERY THREE YEARS
     Route: 059
     Dates: start: 20190116, end: 2019

REACTIONS (10)
  - Implant site oedema [Recovering/Resolving]
  - Implant site pain [Recovering/Resolving]
  - Infected skin ulcer [Unknown]
  - Device expulsion [Recovered/Resolved]
  - Implant site infection [Recovered/Resolved]
  - Purulent discharge [Unknown]
  - Implant site warmth [Recovering/Resolving]
  - Implant site pain [Recovering/Resolving]
  - Foreign body reaction [Unknown]
  - Implant site irritation [Recovering/Resolving]

NARRATIVE: CASE EVENT DATE: 2019
